FAERS Safety Report 17259188 (Version 3)
Quarter: 2020Q1

REPORT INFORMATION
  Report Type: Report from Study
  Country: JP (occurrence: JP)
  Receive Date: 20200110
  Receipt Date: 20200220
  Transmission Date: 20200409
  Serious: Yes (Hospitalization)
  Sender: FDA-Public Use
  Company Number: JP-PFIZER INC-2020009810

PATIENT
  Age: 18 Year
  Sex: Female
  Weight: 50 kg

DRUGS (3)
  1. DIMETHICONE. [Concomitant]
     Active Substance: DIMETHICONE
     Indication: COLITIS ULCERATIVE
     Dosage: UNK
     Route: 048
     Dates: start: 20190905
  2. XELJANZ [Suspect]
     Active Substance: TOFACITINIB CITRATE
     Indication: COLITIS ULCERATIVE
     Dosage: 10 MG, 2X/DAY
     Route: 048
     Dates: start: 20181215
  3. GASTER [Concomitant]
     Active Substance: FAMOTIDINE
     Indication: GASTRITIS
     Dosage: UNK
     Route: 048
     Dates: start: 20190606

REACTIONS (1)
  - Arthritis [Recovered/Resolved]

NARRATIVE: CASE EVENT DATE: 20191226
